FAERS Safety Report 4321144-9 (Version None)
Quarter: 2004Q1

REPORT INFORMATION
  Report Type: 
  Country: None (occurrence: None)
  Receive Date: 20040315
  Receipt Date: 20030402
  Transmission Date: 20041129
  Serious: Yes (Hospitalization)
  Sender: FDA-Public Use
  Company Number: US_030493743

PATIENT
  Age: 74 Year
  Sex: Female
  Weight: 85 kg

DRUGS (4)
  1. GEMZAR [Suspect]
     Indication: OVARIAN EPITHELIAL CANCER RECURRENT
     Dosage: 900 MG
     Dates: start: 20030213, end: 20030220
  2. GEMZAR [Suspect]
     Indication: OVARIAN EPITHELIAL CANCER STAGE III
     Dosage: 900 MG
     Dates: start: 20030213, end: 20030220
  3. NEULASTA [Concomitant]
  4. DOXORUBICIN HCL [Concomitant]

REACTIONS (2)
  - POST PROCEDURAL HAEMORRHAGE [None]
  - THROMBOCYTOPENIA [None]
